FAERS Safety Report 9054209 (Version 2)
Quarter: 2014Q2

REPORT INFORMATION
  Report Type: Spontaneous
  Country: US (occurrence: US)
  Receive Date: 20130208
  Receipt Date: 20140522
  Transmission Date: 20141212
  Serious: Yes (Hospitalization)
  Sender: FDA-Public Use
  Company Number: US-ASTRAZENECA-2013SE03847

PATIENT
  Age: 54 Year
  Sex: Female
  Weight: 104.3 kg

DRUGS (22)
  1. SEROQUEL XR [Suspect]
     Indication: BIPOLAR DISORDER
     Route: 048
     Dates: start: 2006
  2. SEROQUEL XR [Suspect]
     Indication: BIPOLAR DISORDER
     Dosage: BREAKING THE TABLET IN HALF
     Route: 048
     Dates: start: 20130128
  3. SEROQUEL XR [Suspect]
     Indication: BIPOLAR DISORDER
     Route: 048
     Dates: start: 2008
  4. SEROQUEL XR [Suspect]
     Indication: BIPOLAR DISORDER
     Route: 048
  5. LISINOPRIL HCTZ [Suspect]
     Indication: HYPERTENSION
     Dosage: 10-12MG, BID
     Route: 048
     Dates: start: 20130108
  6. METOPROLOL TARTRATE [Concomitant]
     Indication: HYPERTENSION
     Route: 048
     Dates: start: 20130108
  7. METOPROLOL TARTRATE [Concomitant]
     Indication: HYPERTENSION
     Route: 048
     Dates: start: 201301
  8. SIMVASTATIN [Concomitant]
     Indication: BLOOD CHOLESTEROL INCREASED
     Route: 048
     Dates: start: 20130108
  9. SIMVASTATIN [Concomitant]
     Indication: BLOOD TRIGLYCERIDES INCREASED
     Route: 048
     Dates: start: 20130108
  10. SIMVASTATIN [Concomitant]
     Indication: HYPERTENSION
     Route: 048
     Dates: start: 20130108
  11. SIMVASTATIN [Concomitant]
     Indication: BLOOD CHOLESTEROL INCREASED
     Route: 048
     Dates: start: 2013
  12. SIMVASTATIN [Concomitant]
     Indication: BLOOD TRIGLYCERIDES INCREASED
     Route: 048
     Dates: start: 2013
  13. SIMVASTATIN [Concomitant]
     Indication: HYPERTENSION
     Route: 048
     Dates: start: 2013
  14. PLAVIX [Concomitant]
     Indication: ANTICOAGULANT THERAPY
     Dosage: DAILY
     Route: 048
     Dates: start: 20130108
  15. PLAVIX [Concomitant]
     Indication: CEREBROVASCULAR ACCIDENT
     Dosage: DAILY
     Route: 048
     Dates: start: 20130108
  16. PLAVIX [Concomitant]
     Indication: ANTICOAGULANT THERAPY
     Route: 048
     Dates: start: 201301
  17. PLAVIX [Concomitant]
     Indication: CEREBROVASCULAR ACCIDENT
     Route: 048
     Dates: start: 201301
  18. PROTONIX [Concomitant]
     Indication: GASTROOESOPHAGEAL REFLUX DISEASE
     Dosage: DAILY
     Route: 048
     Dates: start: 20130129
  19. PROBIOTIC [Concomitant]
     Indication: DIVERTICULITIS
     Route: 048
     Dates: start: 2014
  20. LYZENE [Concomitant]
     Indication: ORAL HERPES
     Route: 048
     Dates: start: 1994
  21. FLAX SEED OIL [Concomitant]
     Indication: SUPPLEMENTATION THERAPY
     Route: 048
     Dates: start: 2013
  22. TRAZODONE [Concomitant]
     Indication: SLEEP DISORDER
     Route: 048
     Dates: start: 2008

REACTIONS (11)
  - Cerebrovascular accident [Recovered/Resolved]
  - Cerebral thrombosis [Unknown]
  - Blood pressure increased [Unknown]
  - Influenza [Recovering/Resolving]
  - Diarrhoea [Recovering/Resolving]
  - Gastrooesophageal reflux disease [Unknown]
  - Weight increased [Not Recovered/Not Resolved]
  - Vomiting [Recovering/Resolving]
  - Blood cholesterol increased [Unknown]
  - Blood triglycerides increased [Unknown]
  - Intentional product misuse [Not Recovered/Not Resolved]
